FAERS Safety Report 7780086-7 (Version None)
Quarter: 2011Q3

REPORT INFORMATION
  Report Type: 
  Country: None (occurrence: None)
  Receive Date: 20110922
  Receipt Date: 20110912
  Transmission Date: 20111222
  Serious: Yes (Other)
  Sender: FDA-Public Use
  Company Number: 2011AT000325

PATIENT
  Age: 48 Year
  Sex: Female

DRUGS (1)
  1. ALPROSTADIL [Suspect]
     Indication: COLLAGEN DISORDER
     Dosage: 40 UG;QD;IV
     Route: 042
     Dates: start: 20110825, end: 20110902

REACTIONS (1)
  - RAYNAUD'S PHENOMENON [None]
